FAERS Safety Report 14940102 (Version 1)
Quarter: 2018Q2

REPORT INFORMATION
  Report Type: Spontaneous
  Country: US (occurrence: US)
  Receive Date: 20180507
  Receipt Date: 20180507
  Transmission Date: 20180711
  Serious: No
  Sender: FDA-Public Use
  Company Number: None

PATIENT
  Age: 40 Year
  Sex: Female
  Weight: 60.75 kg

DRUGS (4)
  1. LEXAPRO [Concomitant]
     Active Substance: ESCITALOPRAM OXALATE
  2. MAGNESIUM [Concomitant]
     Active Substance: MAGNESIUM
  3. CLONAZEPAM. [Suspect]
     Active Substance: CLONAZEPAM
     Indication: NERVOUS SYSTEM DISORDER
     Dosage: ?          QUANTITY:30 DF DOSAGE FORM;?
     Route: 048
     Dates: start: 20180427, end: 20180506
  4. VITAMIN D [Concomitant]
     Active Substance: CHOLECALCIFEROL

REACTIONS (6)
  - Mental impairment [None]
  - Anxiety [None]
  - Headache [None]
  - Hypoaesthesia [None]
  - Paraesthesia [None]
  - Product substitution issue [None]

NARRATIVE: CASE EVENT DATE: 20180503
